FAERS Safety Report 7003496-4 (Version None)
Quarter: 2010Q3

REPORT INFORMATION
  Report Type: 
  Country: None (occurrence: None)
  Receive Date: 20100916
  Receipt Date: 20100908
  Transmission Date: 20110219
  Serious: Yes (Hospitalization)
  Sender: FDA-Public Use
  Company Number: AT-003514

PATIENT
  Sex: Male

DRUGS (12)
  1. FIRMAGON [Suspect]
     Indication: PROSTATE CANCER
     Dosage: (240 MG 1X SUBCUTANEOUS), (80 MG 1X/MONTH SUBCUTANEOUS)
     Route: 058
     Dates: start: 20100101, end: 20100101
  2. FIRMAGON [Suspect]
     Indication: PROSTATE CANCER
     Dosage: (240 MG 1X SUBCUTANEOUS), (80 MG 1X/MONTH SUBCUTANEOUS)
     Route: 058
     Dates: start: 20100201, end: 20100823
  3. TRENANTONE [Concomitant]
  4. BICALUTAMIDA [Concomitant]
  5. NEBIVOLOL [Concomitant]
  6. SIMVASTATIN [Concomitant]
  7. CITALOPRAM HYDROBROMIDE [Concomitant]
  8. PROTHIPENDYL [Concomitant]
  9. BROMAZEPAM [Concomitant]
  10. FENTANYL [Concomitant]
  11. HYDROMORPHONE HCL [Concomitant]
  12. BISPHOSPHONATES [Concomitant]

REACTIONS (2)
  - ANAPHYLACTIC SHOCK [None]
  - NO REACTION ON PREVIOUS EXPOSURE TO DRUG [None]
